FAERS Safety Report 18652678 (Version 1)
Quarter: 2020Q4

REPORT INFORMATION
  Report Type: Report from Study
  Country: BR (occurrence: BR)
  Receive Date: 20201223
  Receipt Date: 20201223
  Transmission Date: 20210114
  Serious: Yes (Hospitalization, Other)
  Sender: FDA-Public Use
  Company Number: NVSC2020BR338119

PATIENT
  Age: 58 Year
  Sex: Female

DRUGS (1)
  1. COSENTYX [Suspect]
     Active Substance: SECUKINUMAB
     Indication: PSORIASIS
     Dosage: 300 MG, UNKNOWN
     Route: 065
     Dates: start: 20190702, end: 20201030

REACTIONS (16)
  - Spinal fracture [Recovering/Resolving]
  - Injury [Not Recovered/Not Resolved]
  - Pain [Unknown]
  - Stress [Unknown]
  - Joint injury [Not Recovered/Not Resolved]
  - Skin exfoliation [Not Recovered/Not Resolved]
  - Ill-defined disorder [Recovering/Resolving]
  - Rib fracture [Recovering/Resolving]
  - Hand fracture [Recovering/Resolving]
  - Psoriasis [Not Recovered/Not Resolved]
  - Joint dislocation [Recovering/Resolving]
  - Skin injury [Not Recovered/Not Resolved]
  - Ear injury [Unknown]
  - Nail disorder [Not Recovered/Not Resolved]
  - Drug ineffective [Not Recovered/Not Resolved]
  - Illness [Recovering/Resolving]

NARRATIVE: CASE EVENT DATE: 20201110
